FAERS Safety Report 8912102 (Version 3)
Quarter: 2013Q1

REPORT INFORMATION
  Report Type: Spontaneous
  Country: US (occurrence: US)
  Receive Date: 20121116
  Receipt Date: 20130212
  Transmission Date: 20140127
  Serious: No
  Sender: FDA-Public Use
  Company Number: US-PFIZER INC-2012287070

PATIENT
  Age: 23 Year
  Sex: Male
  Weight: 92.97 kg

DRUGS (6)
  1. CHANTIX [Suspect]
     Indication: SMOKING CESSATION THERAPY
     Dosage: 0.5 MG, 1X/DAY FOR THREE DAYS
     Route: 048
     Dates: start: 201110, end: 2011
  2. CHANTIX [Suspect]
     Dosage: 0.5 MG, 2X/DAY FOR 4 DAYS
     Route: 048
     Dates: start: 2011, end: 2011
  3. CHANTIX [Suspect]
     Dosage: 1 MG, 2X/DAY FOR 11 WEEKS
     Route: 048
     Dates: start: 2011, end: 201201
  4. CHANTIX [Suspect]
     Dosage: UNK
     Route: 048
     Dates: start: 201210
  5. SERTRALINE [Concomitant]
     Dosage: 100 MG, 1X/DAY
     Route: 048
  6. ZOLPIDEM [Concomitant]
     Dosage: UNK

REACTIONS (1)
  - Tobacco user [Unknown]
